FAERS Safety Report 4897964-9 (Version None)
Quarter: 2006Q1

REPORT INFORMATION
  Report Type: 
  Country: None (occurrence: None)
  Receive Date: 20060201
  Receipt Date: 20060123
  Transmission Date: 20060701
  Serious: Yes (Other)
  Sender: FDA-Public Use
  Company Number: PHFR2006GB00625

PATIENT
  Age: 48 Year
  Sex: Male

DRUGS (4)
  1. VOLTAREN [Suspect]
     Indication: ANTIINFLAMMATORY THERAPY
     Dosage: TID
     Route: 048
     Dates: start: 20051220, end: 20060103
  2. FLUOXETINE [Concomitant]
     Indication: DEPRESSION
     Dosage: 20 MG, QD
     Route: 048
  3. AMOXICILLIN [Concomitant]
     Dosage: 500 MG, TID
     Route: 048
     Dates: start: 20051220, end: 20051227
  4. GLUCOSAMINE [Concomitant]
     Route: 048

REACTIONS (5)
  - DIZZINESS [None]
  - HYPERHIDROSIS [None]
  - PRURITUS [None]
  - STOMACH DISCOMFORT [None]
  - WHEEZING [None]
